FAERS Safety Report 15955231 (Version 5)
Quarter: 2022Q2

REPORT INFORMATION
  Report Type: Spontaneous
  Country: FR (occurrence: FR)
  Receive Date: 20190213
  Receipt Date: 20220415
  Transmission Date: 20220721
  Serious: Yes (Hospitalization, Disabling, Other)
  Sender: FDA-Public Use
  Company Number: FR-SAKK-2019SA019845AA

PATIENT
  Age: 81 Year
  Sex: Female
  Weight: 48 kg

DRUGS (43)
  1. AMIODARONE [Suspect]
     Active Substance: AMIODARONE
     Indication: Atrial fibrillation
     Dosage: UNK,1 UNIT ON MORNING EXCEPT SUNDAY  AND SATURDAY
     Route: 065
     Dates: start: 20170515, end: 20180220
  2. AMIODARONE [Suspect]
     Active Substance: AMIODARONE
     Dosage: UNK, 1 UNIT ON MORNING EXCEPT SUNDAY  AND SATURDAY
     Route: 065
     Dates: start: 201801
  3. AMIODARONE [Suspect]
     Active Substance: AMIODARONE
     Dosage: UNK
     Route: 065
     Dates: start: 201708
  4. ALDACTONE [Concomitant]
     Active Substance: SPIRONOLACTONE
     Indication: Product used for unknown indication
     Dosage: 0.5 DOSAGE FORM, ONCE A DAY (QD, ? UNITS DAILY)
     Route: 065
     Dates: start: 20170803
  5. ATENOLOL [Concomitant]
     Active Substance: ATENOLOL
     Indication: Product used for unknown indication
     Dosage: 1 DOSAGE FORM, DAILY, 1 UNIT DAILY
     Route: 065
     Dates: start: 201706
  6. ATENOLOL [Concomitant]
     Active Substance: ATENOLOL
     Dosage: 0.5 DOSAGE FORM, ONCE A DAY
     Route: 065
     Dates: start: 20170803
  7. ATENOLOL [Concomitant]
     Active Substance: ATENOLOL
     Dosage: UNK
     Route: 065
  8. AMINOSALICYLIC ACID [Concomitant]
     Active Substance: AMINOSALICYLIC ACID
     Indication: Product used for unknown indication
     Dosage: UNK
     Route: 065
  9. SPIRONOLACTONE [Concomitant]
     Active Substance: SPIRONOLACTONE
     Indication: Oedema
     Dosage: UNK
     Route: 065
  10. SPIRONOLACTONE [Concomitant]
     Active Substance: SPIRONOLACTONE
     Indication: Cardiac failure
  11. CORDARONE [Suspect]
     Active Substance: AMIODARONE HYDROCHLORIDE
     Indication: Atrial fibrillation
     Dosage: UNK, 1 UNIT ON MORNING EXCEPT SUNDAY
     Route: 065
     Dates: start: 201707, end: 20170713
  12. CORDARONE [Suspect]
     Active Substance: AMIODARONE HYDROCHLORIDE
     Dosage: UNK
     Route: 065
     Dates: start: 20170810, end: 201802
  13. CORDARONE [Suspect]
     Active Substance: AMIODARONE HYDROCHLORIDE
     Dosage: UNK
     Route: 065
     Dates: end: 201802
  14. CORDARONE [Suspect]
     Active Substance: AMIODARONE HYDROCHLORIDE
     Dosage: 1 DOSAGE FORM, ONCE A DAY
     Route: 065
  15. CORDARONE [Suspect]
     Active Substance: AMIODARONE HYDROCHLORIDE
     Dosage: 2 DOSAGE FORM, ONCE A DAY,2 UNITS ON MORNING
     Route: 065
     Dates: start: 20170515
  16. CORDARONE [Suspect]
     Active Substance: AMIODARONE HYDROCHLORIDE
     Dosage: UNK
     Route: 065
     Dates: start: 20170803
  17. CORTICOSTEROID NOS [Concomitant]
     Active Substance: CORTICOSTEROID NOS
     Indication: Product used for unknown indication
     Dosage: 500 MILLIGRAM, ONCE A DAY
     Route: 042
  18. CYMBALTA [Concomitant]
     Active Substance: DULOXETINE HYDROCHLORIDE
     Indication: Product used for unknown indication
     Dosage: 1 IN THE EVENING
     Route: 065
  19. PREDNISONE [Concomitant]
     Active Substance: PREDNISONE
     Indication: Product used for unknown indication
     Dosage: 40 MILLIGRAM, ONCE A DAY
     Route: 065
     Dates: start: 20180123
  20. PREDNISONE [Concomitant]
     Active Substance: PREDNISONE
     Dosage: 40 MILLIGRAM, ONCE A DAY
     Route: 065
  21. POTASSIUM CHLORIDE [Concomitant]
     Active Substance: POTASSIUM CHLORIDE
     Indication: Product used for unknown indication
     Dosage: 1 DOSAGE FORM, 3 TIMES A DAY
     Route: 065
     Dates: start: 201707, end: 201707
  22. POTASSIUM CHLORIDE [Concomitant]
     Active Substance: POTASSIUM CHLORIDE
     Dosage: 2 DOSAGE FORM, 3 TIMES A DAY
     Route: 065
     Dates: start: 20170803
  23. POTASSIUM CHLORIDE [Concomitant]
     Active Substance: POTASSIUM CHLORIDE
     Dosage: 1 DOSAGE FORM, TWO TIMES A DAY (1 DF, BID, 1 UNIT TWICE DAILY)
     Route: 065
     Dates: start: 201707
  24. POTASSIUM CHLORIDE [Concomitant]
     Active Substance: POTASSIUM CHLORIDE
     Dosage: 3 DOSAGE FORM, ONCE A DAY
     Route: 065
  25. DULOXETINE [Concomitant]
     Active Substance: DULOXETINE
     Indication: Product used for unknown indication
     Dosage: 2 DOSAGE FORM, ONCE A DAY
     Route: 065
     Dates: start: 20170803
  26. TRIMEBUTINE MALEATE [Concomitant]
     Active Substance: TRIMEBUTINE MALEATE
     Indication: Product used for unknown indication
     Dosage: UNK
     Route: 065
  27. POLYETHYLENE GLYCOL 4000 [Concomitant]
     Active Substance: POLYETHYLENE GLYCOL 4000
     Indication: Product used for unknown indication
     Dosage: 1 DOSAGE FORM, DAILY (1 DF, QD, 1UNIT DAILY)
     Route: 065
     Dates: start: 20170803
  28. FLAGYL [Concomitant]
     Active Substance: METRONIDAZOLE\METRONIDAZOLE HYDROCHLORIDE
     Indication: Product used for unknown indication
     Dosage: UNK
     Route: 065
  29. FUROSEMIDE [Concomitant]
     Active Substance: FUROSEMIDE
     Indication: Product used for unknown indication
     Dosage: 0.25 DOSAGE FORM,QD, 1 / 4UNIT ON MORNING
     Route: 065
     Dates: start: 201707
  30. FUROSEMIDE [Concomitant]
     Active Substance: FUROSEMIDE
     Dosage: 1 DOSAGE FORM, ONCE A DAY
     Route: 065
     Dates: start: 2018
  31. FUROSEMIDE [Concomitant]
     Active Substance: FUROSEMIDE
     Dosage: 1 DOSAGE FORM, ONCE A DAY
     Route: 065
     Dates: start: 20170515, end: 201707
  32. LANSOPRAZOLE [Concomitant]
     Active Substance: LANSOPRAZOLE
     Indication: Product used for unknown indication
     Dosage: 1 DOSAGE FORM, ONCE A DAY
     Route: 065
     Dates: start: 2018
  33. LEVOTHYROXINE [Concomitant]
     Active Substance: LEVOTHYROXINE
     Indication: Product used for unknown indication
     Dosage: 1 DOSAGE FORM, ONCE A DAY
     Route: 065
     Dates: start: 2003
  34. MOVICOL [Concomitant]
     Active Substance: POLYETHYLENE GLYCOL 3350\POTASSIUM CHLORIDE\SODIUM BICARBONATE\SODIUM CHLORIDE
     Indication: Product used for unknown indication
     Dosage: 1 DOSAGE FORM, TWO TIMES A DAY (1 DF, BID, 1 UNIT  TWICE DAILY)
     Route: 065
     Dates: start: 201706
  35. BENSERAZIDE HYDROCHLORIDE\LEVODOPA [Concomitant]
     Active Substance: BENSERAZIDE HYDROCHLORIDE\LEVODOPA
     Indication: Product used for unknown indication
     Dosage: 3 DOSAGE FORM, ONCE A DAY
     Route: 065
     Dates: start: 2018
  36. ROCEPHIN [Concomitant]
     Active Substance: CEFTRIAXONE SODIUM
     Indication: Product used for unknown indication
     Dosage: UNK
     Route: 065
  37. ZOLPIDEM TARTRATE [Concomitant]
     Active Substance: ZOLPIDEM TARTRATE
     Indication: Product used for unknown indication
     Dosage: 1 DOSAGE FORM, ONCE A DAY
     Route: 065
  38. ZOLPIDEM TARTRATE [Concomitant]
     Active Substance: ZOLPIDEM TARTRATE
     Dosage: 10 MILLIGRAM, ONCE A DAY
     Route: 065
  39. SOTALOL [Concomitant]
     Active Substance: SOTALOL
     Indication: Product used for unknown indication
     Dosage: 0.5 DOSAGE FORM, TWO TIMES A DAY
     Route: 065
  40. CHOLECALCIFEROL [Concomitant]
     Active Substance: CHOLECALCIFEROL
     Indication: Product used for unknown indication
     Dosage: UNK
     Route: 065
     Dates: start: 2018
  41. XARELTO [Concomitant]
     Active Substance: RIVAROXABAN
     Indication: Product used for unknown indication
     Dosage: 1 DOSAGE FORM, ONCE A DAY
     Route: 065
     Dates: start: 20170515, end: 201707
  42. XARELTO [Concomitant]
     Active Substance: RIVAROXABAN
     Dosage: 1 DOSAGE FORM, ONCE A DAY
     Route: 065
     Dates: start: 201707
  43. ZOLPIDEM [Concomitant]
     Active Substance: ZOLPIDEM TARTRATE
     Indication: Product used for unknown indication
     Dosage: UNK
     Route: 065
     Dates: start: 2018

REACTIONS (40)
  - Pneumonia [Unknown]
  - Cardiac failure [Recovering/Resolving]
  - Atrial fibrillation [Unknown]
  - Optic neuritis [Not Recovered/Not Resolved]
  - Papilloedema [Not Recovered/Not Resolved]
  - Eye haemorrhage [Unknown]
  - Condition aggravated [Unknown]
  - Hypercapnia [Recovering/Resolving]
  - Dyspnoea [Unknown]
  - Pleural effusion [Recovering/Resolving]
  - Hypoxia [Recovering/Resolving]
  - Aortic valve calcification [Unknown]
  - Visual acuity reduced [Recovering/Resolving]
  - Depression [Unknown]
  - Tremor [Recovering/Resolving]
  - Anaemia [Unknown]
  - Extrapyramidal disorder [Unknown]
  - Optic atrophy [Unknown]
  - Ophthalmic vein thrombosis [Unknown]
  - Cardiac murmur [Recovered/Resolved]
  - Hospitalisation [Unknown]
  - Hypoventilation [Recovering/Resolving]
  - Cerebellar syndrome [Unknown]
  - Cardiac valve disease [Recovering/Resolving]
  - Chest pain [Unknown]
  - Cough [Recovering/Resolving]
  - Retinal vein thrombosis [Unknown]
  - Optic disc haemorrhage [Unknown]
  - Neuropathy peripheral [Unknown]
  - Optic neuropathy [Unknown]
  - Arterial disorder [Unknown]
  - Diplopia [Unknown]
  - Parkinsonism [Unknown]
  - Crepitations [Recovering/Resolving]
  - Oedema peripheral [Recovered/Resolved]
  - Aortic valve disease [Unknown]
  - Hypothyroidism [Unknown]
  - Loss of personal independence in daily activities [Unknown]
  - Autonomic nervous system imbalance [Unknown]
  - Arteriosclerosis [Unknown]

NARRATIVE: CASE EVENT DATE: 20170501
